FAERS Safety Report 5366661-8 (Version None)
Quarter: 2007Q2

REPORT INFORMATION
  Report Type: 
  Country: None (occurrence: None)
  Receive Date: 20070619
  Receipt Date: 20070607
  Transmission Date: 20071010
  Serious: Yes (Other)
  Sender: FDA-Public Use
  Company Number: 234713K07USA

PATIENT
  Age: 47 Year
  Sex: Female
  Weight: 84.8226 kg

DRUGS (3)
  1. REBIF [Suspect]
     Indication: MULTIPLE SCLEROSIS
     Dosage: 44 MCG, 3 IN 1 WEEKS, SUBCUTANEOUS
     Route: 058
     Dates: start: 20060603
  2. LUNESTA [Concomitant]
  3. PRINIVIL (LISINOPRIL/ 00894001/) [Concomitant]

REACTIONS (4)
  - BLOOD TRIGLYCERIDES DECREASED [None]
  - GLUCOSE TOLERANCE IMPAIRED [None]
  - SWELLING [None]
  - WEIGHT INCREASED [None]
